FAERS Safety Report 8305532-1 (Version None)
Quarter: 2012Q2

REPORT INFORMATION
  Report Type: 
  Country: None (occurrence: None)
  Receive Date: 20120423
  Receipt Date: 20120415
  Transmission Date: 20120825
  Serious: Yes (Other)
  Sender: FDA-Public Use
  Company Number: JP-GLAXOSMITHKLINE-B0796999A

PATIENT
  Age: 40 Year
  Sex: Male

DRUGS (4)
  1. PAROXETINE [Suspect]
     Dosage: 20MG PER DAY
     Route: 048
  2. HALCION [Suspect]
     Dosage: .5MG PER DAY
     Route: 048
  3. BROTIZOLAM [Suspect]
     Indication: INSOMNIA
     Dosage: 2IUAX PER DAY
     Route: 048
  4. HALCION [Suspect]
     Indication: INSOMNIA
     Dosage: .25MG PER DAY
     Route: 048

REACTIONS (19)
  - MUSCLE RIGIDITY [None]
  - NAUSEA [None]
  - TONGUE PARALYSIS [None]
  - NEUROLEPTIC MALIGNANT SYNDROME [None]
  - SPINAL CORD INJURY CERVICAL [None]
  - PARESIS [None]
  - VOMITING [None]
  - COLD SWEAT [None]
  - GAIT DISTURBANCE [None]
  - MOVEMENT DISORDER [None]
  - BLOOD CREATINE PHOSPHOKINASE INCREASED [None]
  - WAXY FLEXIBILITY [None]
  - MEMORY IMPAIRMENT [None]
  - DYSPNOEA [None]
  - CATATONIA [None]
  - DRUG DOSE OMISSION [None]
  - ABDOMINAL DISCOMFORT [None]
  - DYSPHONIA [None]
  - MUSCULOSKELETAL STIFFNESS [None]
